FAERS Safety Report 8126912-3 (Version None)
Quarter: 2012Q1

REPORT INFORMATION
  Report Type: 
  Country: None (occurrence: None)
  Receive Date: 20120210
  Receipt Date: 20120127
  Transmission Date: 20120608
  Serious: Yes (Other)
  Sender: FDA-Public Use
  Company Number: US-PFIZER INC-2012003123

PATIENT
  Sex: Female

DRUGS (1)
  1. VENLAFAXINE HYDROCHLORIDE [Suspect]
     Dosage: 100 MG, 3X/DAY
     Route: 048
     Dates: start: 20080101

REACTIONS (2)
  - LABILE BLOOD PRESSURE [None]
  - BLOOD PRESSURE INCREASED [None]
